FAERS Safety Report 14789888 (Version 2)
Quarter: 2018Q2

REPORT INFORMATION
  Report Type: Spontaneous
  Country: US (occurrence: US)
  Receive Date: 20180423
  Receipt Date: 20180516
  Transmission Date: 20180711
  Serious: No
  Sender: FDA-Public Use
  Company Number: US-PFIZER INC-2018163512

PATIENT
  Age: 68 Year
  Sex: Female

DRUGS (3)
  1. EUCRISA [Suspect]
     Active Substance: CRISABOROLE
     Dosage: UNK, DAILY [APPLY THIN LAYER TO AFFECTED AREA DAILY]
     Route: 061
     Dates: start: 2017, end: 2018
  2. DUPILUMAB [Concomitant]
     Active Substance: DUPILUMAB
     Indication: DERMATITIS
     Dosage: UNK
  3. EUCRISA [Suspect]
     Active Substance: CRISABOROLE
     Indication: DERMATITIS
     Dosage: UNK
     Dates: start: 2017, end: 2017

REACTIONS (3)
  - Erythema [Unknown]
  - Off label use [Unknown]
  - Burning sensation [Unknown]
